FAERS Safety Report 14484070 (Version 1)
Quarter: 2018Q1

REPORT INFORMATION
  Report Type: Spontaneous
  Country: DE (occurrence: DE)
  Receive Date: 20180205
  Receipt Date: 20180205
  Transmission Date: 20180509
  Serious: Yes (Hospitalization)
  Sender: FDA-Public Use
  Company Number: DE-ORION CORPORATION ORION PHARMA-18_00002858

PATIENT
  Age: 54 Year
  Sex: Male

DRUGS (11)
  1. HUMIRA [Suspect]
     Active Substance: ADALIMUMAB
     Indication: RHEUMATOID ARTHRITIS
     Route: 058
     Dates: start: 201012, end: 2017
  2. PANTOZOL [Concomitant]
     Active Substance: PANTOPRAZOLE SODIUM
     Route: 065
  3. PREDNISOLON [Concomitant]
     Active Substance: PREDNISOLONE
     Route: 065
  4. METHOTREXATE (TRADE NAME UNKNOWN) [Suspect]
     Active Substance: METHOTREXATE
     Route: 065
  5. FOLIC ACID. [Concomitant]
     Active Substance: FOLIC ACID
     Route: 065
  6. DEKRISTOL [Concomitant]
     Active Substance: CHOLECALCIFEROL
     Route: 065
  7. BISOPROLOL [Concomitant]
     Active Substance: BISOPROLOL
     Route: 065
  8. METHOTREXATE (TRADE NAME UNKNOWN) [Suspect]
     Active Substance: METHOTREXATE
     Route: 065
     Dates: end: 2017
  9. ZOP [Concomitant]
     Route: 065
  10. SIMVASTATIN. [Concomitant]
     Active Substance: SIMVASTATIN
     Route: 065
  11. TARDYFERON [Concomitant]
     Active Substance: FERROUS SULFATE
     Route: 065

REACTIONS (7)
  - Pancreatic duct stenosis [Recovered/Resolved]
  - Pancreatic mass [Recovered/Resolved]
  - Pancreatitis chronic [Unknown]
  - Pancreatitis acute [Recovered/Resolved]
  - Pancreatic calcification [Recovered/Resolved]
  - Pancreatic neoplasm [Unknown]
  - Pancreatic duct rupture [Recovered/Resolved]

NARRATIVE: CASE EVENT DATE: 20141216
